FAERS Safety Report 9062391 (Version 1)
Quarter: 2013Q1

REPORT INFORMATION
  Report Type: Spontaneous
  Country: DK (occurrence: DK)
  Receive Date: 20130213
  Receipt Date: 20130213
  Transmission Date: 20140127
  Serious: Yes (Other)
  Sender: FDA-Public Use
  Company Number: DK-GLAXOSMITHKLINE-B0865765A

PATIENT
  Age: 74 Year
  Sex: Female

DRUGS (3)
  1. CEFUROXIME [Suspect]
     Indication: UROSEPSIS
     Dosage: 1500MG THREE TIMES PER DAY
     Route: 065
  2. DICLOXACILLIN [Suspect]
     Indication: STAPHYLOCOCCAL INFECTION
     Dosage: 2G FOUR TIMES PER DAY
     Route: 065
  3. RIFAMPICIN [Suspect]
     Indication: STAPHYLOCOCCAL INFECTION
     Dosage: 600MG TWICE PER DAY
     Route: 065

REACTIONS (10)
  - Endocarditis staphylococcal [Recovered/Resolved]
  - Pancreatic disorder [Unknown]
  - Drug effect incomplete [Unknown]
  - Mitral valve disease [Unknown]
  - Fatigue [Unknown]
  - Headache [Unknown]
  - Hyperhidrosis [Unknown]
  - White blood cell count increased [Unknown]
  - C-reactive protein increased [Unknown]
  - Abscess [Unknown]
